FAERS Safety Report 6388638-6 (Version None)
Quarter: 2009Q4

REPORT INFORMATION
  Report Type: 
  Country: None (occurrence: None)
  Receive Date: 20091001
  Receipt Date: 20090919
  Transmission Date: 20100525
  Serious: Yes (Other)
  Sender: FDA-Public Use
  Company Number: 2009AP003831

PATIENT
  Age: 89 Year
  Sex: Female

DRUGS (5)
  1. CITALOPRAM HYDROBROMIDE [Suspect]
     Dosage: 40 MG
  2. TRAMADOL HCL [Suspect]
     Dosage: 150 MG
  3. TRYPTOPHEN, L- (TRYPTOPHAN, L-) [Concomitant]
  4. VALPROATE SODIUM [Concomitant]
  5. TEMAZEPAM [Concomitant]

REACTIONS (4)
  - DEPRESSED LEVEL OF CONSCIOUSNESS [None]
  - DRUG INTERACTION [None]
  - HALLUCINATIONS, MIXED [None]
  - SEROTONIN SYNDROME [None]
